FAERS Safety Report 8949582 (Version 1)
Quarter: 2012Q4

REPORT INFORMATION
  Report Type: Report from Study
  Country: US (occurrence: US)
  Receive Date: 20121206
  Receipt Date: 20121206
  Transmission Date: 20130627
  Serious: Yes (Hospitalization, Other)
  Sender: FDA-Public Use
  Company Number: US-JNJFOC-20121201440

PATIENT
  Age: 16 Year
  Sex: Female
  Weight: 63.8 kg

DRUGS (8)
  1. REMICADE [Suspect]
     Indication: INFLAMMATORY BOWEL DISEASE
     Route: 042
     Dates: start: 20120402
  2. REMICADE [Suspect]
     Indication: INFLAMMATORY BOWEL DISEASE
     Route: 042
     Dates: start: 20021105, end: 20090223
  3. MULTIVIT [Concomitant]
  4. 5-ASA [Concomitant]
  5. PRILOSEC [Concomitant]
  6. BENADRYL [Concomitant]
     Indication: PREMEDICATION
  7. TYLENOL [Concomitant]
     Indication: PREMEDICATION
  8. METHYLPREDNISOLONE [Concomitant]
     Route: 042

REACTIONS (2)
  - Urticaria [Recovered/Resolved]
  - Infusion related reaction [Recovered/Resolved]
